FAERS Safety Report 6292930-3 (Version None)
Quarter: 2009Q3

REPORT INFORMATION
  Report Type: 
  Country: None (occurrence: None)
  Receive Date: 20090729
  Receipt Date: 20090720
  Transmission Date: 20100115
  Serious: Yes (Other)
  Sender: FDA-Public Use
  Company Number: ADR8062009

PATIENT
  Age: 77 Year
  Sex: Female

DRUGS (18)
  1. ALENDRONIC ACID (MFR: UNKNOWN) [Suspect]
     Indication: OSTEOPOROSIS
     Dosage: 70 MG ORAL USE
     Route: 048
     Dates: start: 20080601, end: 20081001
  2. AMOXICILLIN [Concomitant]
  3. CALCIUM CARBONATE [Concomitant]
  4. COLECALCIFEROL [Concomitant]
  5. DOCUSATE SODIUM [Concomitant]
  6. FLUCLOXACILLIN [Concomitant]
  7. FUROSEMIDE [Concomitant]
  8. NICORANDIL [Concomitant]
  9. OMEPRAZOLE [Concomitant]
  10. ORAMORPH SR [Concomitant]
  11. PARACETAMOL [Concomitant]
  12. PREDNISOLONE [Concomitant]
  13. SALBUTAMOL [Concomitant]
  14. SENNA [Concomitant]
  15. SERETIDE [Concomitant]
  16. SIMVASTATIN [Concomitant]
  17. TIOTROPIUM BROMIDE [Concomitant]
  18. TRIMETHOPRIM [Concomitant]

REACTIONS (4)
  - GASTRITIS [None]
  - HYPERSENSITIVITY [None]
  - MOBILITY DECREASED [None]
  - OESOPHAGITIS [None]
